FAERS Safety Report 9197773 (Version 4)
Quarter: 2014Q1

REPORT INFORMATION
  Report Type: Report from Study
  Country: BE (occurrence: BE)
  Receive Date: 20130328
  Receipt Date: 20140306
  Transmission Date: 20141002
  Serious: Yes (Other)
  Sender: FDA-Public Use
  Company Number: BE-CELGENEUS-013-21880-13033504

PATIENT
  Age: 76 Year
  Sex: Male
  Weight: 75 kg

DRUGS (7)
  1. BLINDED REVLIMID [Suspect]
     Indication: DIFFUSE LARGE B-CELL LYMPHOMA
     Route: 048
     Dates: start: 20110301, end: 20120104
  2. METFORMIN [Concomitant]
     Indication: DIABETES MELLITUS
     Route: 065
     Dates: start: 20050921
  3. GABAPENTINE [Concomitant]
     Indication: POLYNEUROPATHY
     Route: 065
     Dates: start: 20130213
  4. ZOLPIDEM [Concomitant]
     Indication: INSOMNIA
     Route: 065
     Dates: start: 20120808
  5. CLONAZEPAM [Concomitant]
     Indication: INSOMNIA
     Route: 065
     Dates: start: 20100909
  6. BEFACT [Concomitant]
     Indication: POLYNEUROPATHY
     Route: 065
     Dates: start: 20120713
  7. CELIPROLOL [Concomitant]
     Indication: HYPERTENSION
     Route: 065
     Dates: start: 20050921

REACTIONS (1)
  - Refractory anaemia with an excess of blasts [Not Recovered/Not Resolved]
